FAERS Safety Report 10866162 (Version 2)
Quarter: 2015Q1

REPORT INFORMATION
  Report Type: Spontaneous
  Country: IT (occurrence: None)
  Receive Date: 20150219
  Receipt Date: 20150306
  Transmission Date: 20150721
  Serious: Yes (Hospitalization)
  Sender: FDA-Public Use
  Company Number: FK201500804

PATIENT
  Age: 62 Year
  Sex: Male

DRUGS (9)
  1. CEFTRIAXON (MANUFACTURER UNKNOWN) (CEFTRIAXON-DINATRIUM) (CEFTRIAXON-DINATRIUM) [Suspect]
     Active Substance: CEFTRIAXONE
     Indication: ANTIBIOTIC PROPHYLAXIS
     Route: 042
     Dates: start: 20150204, end: 20150204
  2. LASIX [Concomitant]
     Active Substance: FUROSEMIDE
  3. COUMADIN [Concomitant]
     Active Substance: WARFARIN SODIUM
  4. NORVASC [Concomitant]
     Active Substance: AMLODIPINE BESYLATE
  5. LANOXIN [Concomitant]
     Active Substance: DIGOXIN
  6. HUMALOG [Concomitant]
     Active Substance: INSULIN LISPRO
  7. LANTUS [Concomitant]
     Active Substance: INSULIN GLARGINE
  8. SPIRIVA (TIOTROPIUM BROMIDE) [Concomitant]
  9. ANTRA (OMEPRAZOLE) [Concomitant]
     Active Substance: OMEPRAZOLE

REACTIONS (4)
  - Hypotension [None]
  - Shock [None]
  - Dyspnoea [None]
  - Acute respiratory failure [None]

NARRATIVE: CASE EVENT DATE: 20150204
